FAERS Safety Report 9896271 (Version 1)
Quarter: 2014Q1

REPORT INFORMATION
  Report Type: Spontaneous
  Country: US (occurrence: US)
  Receive Date: 20140213
  Receipt Date: 20140213
  Transmission Date: 20141002
  Serious: No
  Sender: FDA-Public Use
  Company Number: US-BRISTOL-MYERS SQUIBB COMPANY-18808410

PATIENT
  Age: 73 Year
  Sex: Male
  Weight: 106.57 kg

DRUGS (1)
  1. ABATACEPT SUBQ INJECTION 125MG/ML [Suspect]
     Indication: PSORIATIC ARTHROPATHY
     Dosage: LAST INJECTION WAS ON 13APR2013
     Route: 058
     Dates: start: 201211

REACTIONS (1)
  - Nasopharyngitis [Recovering/Resolving]
